FAERS Safety Report 18332555 (Version 1)
Quarter: 2020Q3

REPORT INFORMATION
  Report Type: Spontaneous
  Country: US (occurrence: US)
  Receive Date: 20200930
  Receipt Date: 20200930
  Transmission Date: 20201103
  Serious: No
  Sender: FDA-Public Use
  Company Number: US-009507513-2009USA005474

PATIENT
  Age: 67 Year
  Sex: Male

DRUGS (1)
  1. KEYTRUDA [Suspect]
     Active Substance: PEMBROLIZUMAB
     Indication: BLADDER NEOPLASM
     Dosage: 200 MILLIGRAM, Q3W
     Route: 042

REACTIONS (5)
  - Skin exfoliation [Unknown]
  - Rash [Not Recovered/Not Resolved]
  - Genital rash [Not Recovered/Not Resolved]
  - Dysphagia [Unknown]
  - Stomatitis [Unknown]
